FAERS Safety Report 7254306-1 (Version None)
Quarter: 2011Q1

REPORT INFORMATION
  Report Type: 
  Country: None (occurrence: None)
  Receive Date: 20110129
  Receipt Date: 20100218
  Transmission Date: 20110831
  Serious: No
  Sender: FDA-Public Use
  Company Number: US-ABBOTT-10P-163-0621998-00

PATIENT
  Sex: Female
  Weight: 36.32 kg

DRUGS (2)
  1. METHOTREXATE [Concomitant]
     Indication: PRODUCT USED FOR UNKNOWN INDICATION
  2. HUMIRA [Suspect]
     Indication: JUVENILE ARTHRITIS
     Dates: start: 20100114

REACTIONS (4)
  - HEADACHE [None]
  - FATIGUE [None]
  - INJECTION SITE HAEMATOMA [None]
  - NAUSEA [None]
